FAERS Safety Report 5773546-1 (Version None)
Quarter: 2008Q2

REPORT INFORMATION
  Report Type: 
  Country: None (occurrence: None)
  Receive Date: 20080616
  Receipt Date: 20080605
  Transmission Date: 20081010
  Serious: Yes (Death)
  Sender: FDA-Public Use
  Company Number: ES-BAYER-200819766GPV

PATIENT
  Age: 78 Year
  Sex: Female

DRUGS (7)
  1. ASPIRIN [Suspect]
     Indication: DRUG USE FOR UNKNOWN INDICATION
     Dosage: TOTAL DAILY DOSE: 100 MG  UNIT DOSE: 100 MG
     Route: 048
     Dates: start: 20070201, end: 20080414
  2. ENOXAPARIN SODIUM [Interacting]
     Indication: PROPHYLAXIS
     Dosage: TOTAL DAILY DOSE: 40 MG  UNIT DOSE: 40 MG
     Route: 048
     Dates: start: 20080409, end: 20080414
  3. NOLOTIL /METAMIZOL MAGNESIUM [Interacting]
     Indication: ANALGESIA
     Route: 048
     Dates: start: 20080408, end: 20080414
  4. DIANBEN 850 MG/METFORMIN HYDROCHLORIDE [Concomitant]
     Indication: TYPE 2 DIABETES MELLITUS
     Dosage: TOTAL DAILY DOSE: 850 MG  UNIT DOSE: 850 MG
     Route: 048
     Dates: start: 20070101, end: 20080414
  5. GLYBURIDE [Concomitant]
     Indication: TYPE 2 DIABETES MELLITUS
     Route: 048
     Dates: start: 20070101, end: 20080414
  6. XALACOM COLIRIUM SOLUTION 5 ML /TIMOLOL MALEATE/LATANOPROST [Concomitant]
     Indication: DRUG USE FOR UNKNOWN INDICATION
     Route: 047
     Dates: start: 20070601, end: 20080414
  7. BITENSIL DIU /HYDROCHLOROTIAZIDE/ENALAPRIL MALEATE [Concomitant]
     Indication: HYPERTENSION
     Route: 048
     Dates: start: 20071201, end: 20080414

REACTIONS (4)
  - DIARRHOEA [None]
  - GASTRODUODENAL HAEMORRHAGE [None]
  - NAUSEA [None]
  - VOMITING [None]
